FAERS Safety Report 25283092 (Version 1)
Quarter: 2025Q2

REPORT INFORMATION
  Report Type: Spontaneous
  Country: CN (occurrence: CN)
  Receive Date: 20250508
  Receipt Date: 20250508
  Transmission Date: 20250717
  Serious: Yes (Other)
  Sender: BAYER HEALTHCARE PHARMACEUTICALS INC.
  Company Number: CN-BAYER-2025A062314

PATIENT
  Age: 39 Year
  Sex: Male
  Weight: 47 kg

DRUGS (1)
  1. ULTRAVIST [Suspect]
     Active Substance: IOPROMIDE
     Indication: Angiocardiogram
     Route: 041
     Dates: start: 20250425, end: 20250425

REACTIONS (8)
  - Contrast media allergy [Recovering/Resolving]
  - Chills [Recovering/Resolving]
  - Hyperpyrexia [Recovering/Resolving]
  - Pneumonitis [None]
  - Tachypnoea [Recovering/Resolving]
  - Breath sounds abnormal [None]
  - Rales [None]
  - Haemoglobin decreased [None]

NARRATIVE: CASE EVENT DATE: 20250425
